FAERS Safety Report 19285455 (Version 1)
Quarter: 2021Q2

REPORT INFORMATION
  Report Type: Spontaneous
  Country: NL (occurrence: NL)
  Receive Date: 20210521
  Receipt Date: 20210521
  Transmission Date: 20210717
  Serious: Yes (Other)
  Sender: FDA-Public Use
  Company Number: NL-TEVA-2021-NL-1914666

PATIENT
  Sex: Female

DRUGS (1)
  1. GYNO?MICONAZOLNITRAAT TEVA 20 MG/G, CREME VOOR VAGINAAL GEBRUIK [Suspect]
     Active Substance: MICONAZOLE NITRATE
     Indication: PRODUCT USED FOR UNKNOWN INDICATION

REACTIONS (4)
  - Vaginal haemorrhage [Unknown]
  - Device difficult to use [Unknown]
  - Injury associated with device [Unknown]
  - Device physical property issue [Unknown]
